FAERS Safety Report 17025855 (Version 1)
Quarter: 2019Q4

REPORT INFORMATION
  Report Type: Spontaneous
  Country: GB (occurrence: GB)
  Receive Date: 20191113
  Receipt Date: 20191113
  Transmission Date: 20200122
  Serious: Yes (Other)
  Sender: FDA-Public Use
  Company Number: GB-PFIZER INC-2019483949

PATIENT
  Age: 72 Year
  Sex: Female
  Weight: 80 kg

DRUGS (2)
  1. KETAMINE HCL [Suspect]
     Active Substance: KETAMINE HYDROCHLORIDE
     Indication: BACK PAIN
     Dosage: UNK
  2. ESKETAMINE [Suspect]
     Active Substance: ESKETAMINE
     Indication: BACK PAIN
     Dosage: 2.5 MG, UNK
     Route: 042
     Dates: start: 20180112, end: 20180112

REACTIONS (4)
  - Anaesthetic complication neurological [Unknown]
  - Apnoea [Unknown]
  - Wrong product administered [Unknown]
  - Respiratory depression [Recovered/Resolved]

NARRATIVE: CASE EVENT DATE: 20180112
